FAERS Safety Report 14915496 (Version 1)
Quarter: 2018Q2

REPORT INFORMATION
  Report Type: Spontaneous
  Country: CH (occurrence: CH)
  Receive Date: 20180518
  Receipt Date: 20180518
  Transmission Date: 20180711
  Serious: Yes (Other)
  Sender: FDA-Public Use
  Company Number: CH-ELI_LILLY_AND_COMPANY-CH201805007387

PATIENT
  Age: 48 Year
  Sex: Female

DRUGS (2)
  1. EVISTA [Suspect]
     Active Substance: RALOXIFENE HYDROCHLORIDE
     Dosage: 1 DF, DAILY
     Route: 048
     Dates: start: 201707
  2. EVISTA [Suspect]
     Active Substance: RALOXIFENE HYDROCHLORIDE
     Indication: OSTEOPOROSIS
     Dosage: 1 DF, DAILY
     Route: 048
     Dates: start: 201607, end: 201612

REACTIONS (2)
  - Erythema nodosum [Unknown]
  - Erythema nodosum [Recovered/Resolved]

NARRATIVE: CASE EVENT DATE: 201608
